FAERS Safety Report 5800459-9 (Version None)
Quarter: 2008Q3

REPORT INFORMATION
  Report Type: 
  Country: None (occurrence: None)
  Receive Date: 20080703
  Receipt Date: 20080611
  Transmission Date: 20090109
  Serious: Yes (Congenital Anomaly)
  Sender: FDA-Public Use
  Company Number: A0681017A

PATIENT
  Sex: Female

DRUGS (10)
  1. PAXIL CR [Suspect]
     Indication: DEPRESSION
     Dosage: 25MG UNKNOWN
     Dates: start: 20040330, end: 20050101
  2. PAROXETINE HCL [Suspect]
     Indication: DEPRESSION
     Dosage: 25MG UNKNOWN
     Dates: start: 20031016
  3. PAXIL [Suspect]
     Indication: DEPRESSION
  4. METOCLOPRAMIDE HCL [Concomitant]
     Dates: start: 20040101
  5. ZOFRAN [Concomitant]
     Dates: start: 20040101
  6. TERAZOL 7 [Concomitant]
     Dates: start: 20040101
  7. PROMETHAZINE [Concomitant]
     Dates: start: 20040101
  8. ZITHROMAX [Concomitant]
     Dates: start: 20040101
  9. HYDROCODONE BITARTRATE AND ACETAMINOPHEN [Concomitant]
     Dates: start: 20040101
  10. VITAMIN TAB [Concomitant]

REACTIONS (9)
  - ATRIAL SEPTAL DEFECT [None]
  - CARDIAC MURMUR [None]
  - DRUG EXPOSURE DURING PREGNANCY [None]
  - MITRAL VALVE INCOMPETENCE [None]
  - PATENT DUCTUS ARTERIOSUS [None]
  - PULMONARY HYPERTENSION [None]
  - RESPIRATORY DISTRESS [None]
  - TRICUSPID VALVE INCOMPETENCE [None]
  - VENTRICULAR SEPTAL DEFECT [None]
